FAERS Safety Report 9102502 (Version 2)
Quarter: 2013Q1

REPORT INFORMATION
  Report Type: Spontaneous
  Country: US (occurrence: US)
  Receive Date: 20130219
  Receipt Date: 20130305
  Transmission Date: 20140127
  Serious: Yes (Hospitalization, Other)
  Sender: FDA-Public Use
  Company Number: US-JNJFOC-20130203098

PATIENT
  Age: 56 Year
  Sex: Female
  Weight: 110.68 kg

DRUGS (14)
  1. HALDOL [Suspect]
     Indication: PRODUCT USED FOR UNKNOWN INDICATION
     Route: 065
  2. BRONKAID [Suspect]
     Indication: ASTHMA
     Dosage: 3 TABLETS TOGETHER
     Route: 048
  3. PRIMATENE [Suspect]
     Indication: ASTHMA
     Dosage: 25/400 MG 4 TIMES A DAY
     Route: 048
  4. ADVAIR [Suspect]
     Indication: NASOPHARYNGITIS
     Route: 065
  5. SEROQUEL [Suspect]
     Indication: PRODUCT USED FOR UNKNOWN INDICATION
     Route: 065
  6. ATIVAN [Suspect]
     Indication: PRODUCT USED FOR UNKNOWN INDICATION
     Route: 065
  7. PREDNISONE [Suspect]
     Indication: PRODUCT USED FOR UNKNOWN INDICATION
     Route: 065
  8. DEXAMETHASONE [Suspect]
     Indication: PRODUCT USED FOR UNKNOWN INDICATION
     Route: 065
  9. METHYLPREDNISOLONE [Suspect]
     Indication: PRODUCT USED FOR UNKNOWN INDICATION
     Route: 065
  10. SEROQUEL [Suspect]
     Indication: PRODUCT USED FOR UNKNOWN INDICATION
  11. SILVER COLLOIDAL [Concomitant]
     Indication: PRODUCT USED FOR UNKNOWN INDICATION
     Route: 065
  12. SYNTHROID [Concomitant]
     Indication: PRODUCT USED FOR UNKNOWN INDICATION
     Route: 065
  13. SINGULAIR [Concomitant]
     Indication: HOUSE DUST ALLERGY
     Route: 065
  14. ALEVE [Concomitant]
     Indication: BACK DISORDER
     Route: 065

REACTIONS (12)
  - Cellulitis [Unknown]
  - Oedema [Unknown]
  - Infection [Unknown]
  - Blood glucose increased [Unknown]
  - Dizziness [Unknown]
  - Therapeutic response decreased [Unknown]
  - Feeling abnormal [Unknown]
  - Nervousness [Not Recovered/Not Resolved]
  - Mucous membrane disorder [Not Recovered/Not Resolved]
  - Cough [Not Recovered/Not Resolved]
  - Rhinorrhoea [Not Recovered/Not Resolved]
  - Adverse event [Unknown]
